FAERS Safety Report 6718645-2 (Version None)
Quarter: 2010Q2

REPORT INFORMATION
  Report Type: 
  Country: None (occurrence: None)
  Receive Date: 20100504
  Receipt Date: 20100420
  Transmission Date: 20101027
  Serious: Yes (Other)
  Sender: FDA-Public Use
  Company Number: 230002M10BEL

PATIENT
  Age: 33 Year
  Sex: Female

DRUGS (3)
  1. REBIF [Suspect]
     Indication: MULTIPLE SCLEROSIS
     Dates: start: 20100220
  2. AMANTAN (AMANTADINE) (AMANTADINE) [Concomitant]
  3. FLUOXETINE [Concomitant]

REACTIONS (6)
  - DYSPNOEA [None]
  - INTERSTITIAL LUNG DISEASE [None]
  - LUNG INFILTRATION [None]
  - PCO2 DECREASED [None]
  - PO2 DECREASED [None]
  - PULMONARY TOXICITY [None]
